FAERS Safety Report 12968355 (Version 1)
Quarter: 2016Q4

REPORT INFORMATION
  Report Type: Spontaneous
  Country: PK (occurrence: PK)
  Receive Date: 20161123
  Receipt Date: 20161123
  Transmission Date: 20170207
  Serious: Yes (Hospitalization, Other)
  Sender: FDA-Public Use
  Company Number: PK-GLAXOSMITHKLINE-PK2016GSK172984

PATIENT
  Age: 51 Year
  Sex: Female

DRUGS (8)
  1. AMINOPHYLLINE. [Suspect]
     Active Substance: AMINOPHYLLINE
  2. BORTEZOMIB [Concomitant]
     Active Substance: BORTEZOMIB
     Indication: PLASMA CELL MYELOMA
  3. METHYLPREDNISOLONE. [Concomitant]
     Active Substance: METHYLPREDNISOLONE
  4. SALBUTAMOL [Suspect]
     Active Substance: ALBUTEROL
  5. MONTELUKAST [Concomitant]
     Active Substance: MONTELUKAST SODIUM
  6. LEVOFLOXACIN. [Concomitant]
     Active Substance: LEVOFLOXACIN
  7. IPRATROPIUM BROMIDE. [Concomitant]
     Active Substance: IPRATROPIUM BROMIDE
  8. THALIDOMIDE [Concomitant]
     Active Substance: THALIDOMIDE
     Indication: PLASMA CELL MYELOMA

REACTIONS (15)
  - Stress cardiomyopathy [Recovering/Resolving]
  - Respiratory acidosis [Unknown]
  - Hypoxia [Unknown]
  - Electrocardiogram ST segment elevation [Unknown]
  - Akinesia [Unknown]
  - Hyperkinesia [Unknown]
  - Blood creatinine increased [Unknown]
  - Dyspnoea [Unknown]
  - Asthma [Unknown]
  - Electrocardiogram T wave inversion [Unknown]
  - Pain in jaw [Unknown]
  - Acute coronary syndrome [Unknown]
  - Wheezing [Unknown]
  - Respiratory distress [Unknown]
  - Drug effect increased [Unknown]
